FAERS Safety Report 6549650-7 (Version None)
Quarter: 2010Q1

REPORT INFORMATION
  Report Type: 
  Country: None (occurrence: None)
  Receive Date: 20100119
  Receipt Date: 20100110
  Transmission Date: 20100710
  Serious: Yes (Other)
  Sender: FDA-Public Use
  Company Number: 2009SP038574

PATIENT
  Age: 47 Year
  Sex: Male
  Weight: 92 kg

DRUGS (3)
  1. PEG-INTRON [Suspect]
     Indication: HEPATITIS C
     Dosage: 150 MCG;QD
     Dates: start: 20090212, end: 20091127
  2. REBETOL [Suspect]
     Indication: HEPATITIS C
     Dosage: 1200 MCG;QD
     Dates: start: 20090212, end: 20091127
  3. CIPRAMIL [Concomitant]

REACTIONS (6)
  - CRYOGLOBULINAEMIA [None]
  - FOLLICULITIS [None]
  - HYPOAESTHESIA [None]
  - PURULENCE [None]
  - VISUAL ACUITY REDUCED [None]
  - WHITE BLOOD CELL COUNT DECREASED [None]
